FAERS Safety Report 20545207 (Version 1)
Quarter: 2022Q1

REPORT INFORMATION
  Report Type: Spontaneous
  Country: US (occurrence: US)
  Receive Date: 20220303
  Receipt Date: 20220303
  Transmission Date: 20220424
  Serious: No
  Sender: FDA-Public Use
  Company Number: US-ALLERGAN-2111619US

PATIENT
  Age: 70 Year
  Sex: Female

DRUGS (7)
  1. RESTASIS [Suspect]
     Active Substance: CYCLOSPORINE
     Indication: Dry eye
     Dosage: EVERY NOW AND THEN 1 GTT AT TIME IN WACH EYE
     Route: 047
     Dates: start: 202103
  2. RITUXAN [Concomitant]
     Active Substance: RITUXIMAB
     Indication: Rheumatoid arthritis
     Dosage: UNK, UNK, Q6M
     Route: 042
  3. LOSARTAN [Concomitant]
     Active Substance: LOSARTAN
     Indication: Hypertension
  4. Unspecified medication for dry mouth [Concomitant]
     Indication: Dry mouth
  5. Unspecified stomach medication [Concomitant]
     Indication: Diverticulum
  6. VITAMINS [Concomitant]
     Active Substance: VITAMINS
  7. GENTEAL MILD [Concomitant]
     Active Substance: HYPROMELLOSE 2910 (4000 MPA.S)
     Route: 047

REACTIONS (2)
  - Inappropriate schedule of product administration [Unknown]
  - Eye irritation [Unknown]

NARRATIVE: CASE EVENT DATE: 20210301
